FAERS Safety Report 4951247-7 (Version None)
Quarter: 2006Q1

REPORT INFORMATION
  Report Type: 
  Country: None (occurrence: None)
  Receive Date: 20060317
  Receipt Date: 20060302
  Transmission Date: 20060701
  Serious: Yes (Hospitalization)
  Sender: FDA-Public Use
  Company Number: FR200602004467

PATIENT
  Age: 25 Year
  Sex: Male

DRUGS (4)
  1. ZYPREXA [Suspect]
     Indication: SCHIZOPHRENIA
     Dosage: 10 MG, DAILY (1/D), ORAL; SEE IMAGE
     Route: 048
     Dates: start: 20010101, end: 20060202
  2. ZYPREXA [Suspect]
     Indication: SCHIZOPHRENIA
     Dosage: 10 MG, DAILY (1/D), ORAL; SEE IMAGE
     Route: 048
     Dates: start: 20060202, end: 20060202
  3. ZYPREXA [Suspect]
     Indication: SCHIZOPHRENIA
     Dosage: 10 MG, DAILY (1/D), ORAL; SEE IMAGE
     Route: 048
     Dates: start: 20060203, end: 20060203
  4. IMOVANE [Concomitant]

REACTIONS (6)
  - BRIEF PSYCHOTIC DISORDER WITH MARKED STRESSORS [None]
  - INTENTIONAL OVERDOSE [None]
  - MALAISE [None]
  - SOMNOLENCE [None]
  - SUICIDE ATTEMPT [None]
  - TACHYCARDIA [None]
